FAERS Safety Report 17527146 (Version 5)
Quarter: 2021Q1

REPORT INFORMATION
  Report Type: Spontaneous
  Country: US (occurrence: US)
  Receive Date: 20200311
  Receipt Date: 20210215
  Transmission Date: 20210419
  Serious: No
  Sender: FDA-Public Use
  Company Number: US-PFIZER INC-2020105171

PATIENT
  Age: 92 Year
  Sex: Female

DRUGS (1)
  1. XELJANZ [Suspect]
     Active Substance: TOFACITINIB CITRATE
     Indication: RHEUMATOID ARTHRITIS
     Dosage: 5 MG, 2X/DAY
     Route: 048
     Dates: start: 20200302

REACTIONS (6)
  - Rash macular [Unknown]
  - Drug ineffective [Unknown]
  - Inflammation [Recovered/Resolved]
  - Gait disturbance [Unknown]
  - Hyperkeratosis [Unknown]
  - Pain [Recovered/Resolved]
